FAERS Safety Report 5638614-3 (Version None)
Quarter: 2008Q1

REPORT INFORMATION
  Report Type: 
  Country: None (occurrence: None)
  Receive Date: 20080226
  Receipt Date: 20070709
  Transmission Date: 20080703
  Serious: No
  Sender: FDA-Public Use
  Company Number: A0663448A

PATIENT
  Sex: Female

DRUGS (1)
  1. IMITREX [Suspect]
     Indication: DRUG USE FOR UNKNOWN INDICATION
     Route: 065
     Dates: start: 20070706

REACTIONS (4)
  - ASTHENIA [None]
  - CHEST PAIN [None]
  - HEAD DISCOMFORT [None]
  - SENSATION OF HEAVINESS [None]
